FAERS Safety Report 11062605 (Version 1)
Quarter: 2015Q2

REPORT INFORMATION
  Report Type: Spontaneous
  Country: FR (occurrence: None)
  Receive Date: 20150422
  Receipt Date: 20150422
  Transmission Date: 20150821
  Serious: No
  Sender: FDA-Public Use
  Company Number: SP09296

PATIENT
  Age: 72 Year
  Sex: Male

DRUGS (3)
  1. XIFAXAN [Suspect]
     Active Substance: RIFAXIMIN
     Indication: HEPATIC ENCEPHALOPATHY
     Dosage: 550 MG, 2 IN 1 D
     Route: 048
     Dates: start: 20150116, end: 20150122
  2. DUPHALAC [Concomitant]
     Active Substance: LACTULOSE
  3. LASILIX [Concomitant]
     Active Substance: FUROSEMIDE

REACTIONS (1)
  - Hepatocellular injury [None]

NARRATIVE: CASE EVENT DATE: 20150120
